FAERS Safety Report 11246675 (Version 1)
Quarter: 2015Q3

REPORT INFORMATION
  Report Type: Spontaneous
  Country: US (occurrence: None)
  Receive Date: 20150706
  Receipt Date: 20150706
  Transmission Date: 20151125
  Serious: No
  Sender: FDA-Public Use
  Company Number: None

PATIENT
  Age: 26 Year
  Sex: Female
  Weight: 83.92 kg

DRUGS (3)
  1. VALTREX [Suspect]
     Active Substance: VALACYCLOVIR HYDROCHLORIDE
     Indication: SIMPLEX VIRUS TEST POSITIVE
     Dosage: 2 TABLETS?TWICE DAILY?TAKEN BY MOUTH?THERAPY?24
     Route: 048
  2. NORGESTIMATE/ESTRADIOL [Concomitant]
  3. VALTREX [Suspect]
     Active Substance: VALACYCLOVIR HYDROCHLORIDE
     Indication: ORAL HERPES
     Dosage: 2 TABLETS?TWICE DAILY?TAKEN BY MOUTH?THERAPY?24
     Route: 048

REACTIONS (1)
  - Thirst [None]

NARRATIVE: CASE EVENT DATE: 20150629
